FAERS Safety Report 9692982 (Version 1)
Quarter: 2013Q4

REPORT INFORMATION
  Report Type: Spontaneous
  Country: US (occurrence: None)
  Receive Date: 20131114
  Receipt Date: 20131114
  Transmission Date: 20140711
  Serious: Yes (Hospitalization)
  Sender: FDA-Public Use
  Company Number: DL2013-0823

PATIENT
  Age: 22 Year
  Sex: Female

DRUGS (3)
  1. MIFEPRISTONE [Suspect]
     Indication: ABORTION INDUCED
     Route: 048
     Dates: start: 20130815
  2. MISOPROSTOL TABLETS, 200 MCG [Suspect]
     Route: 002
     Dates: start: 20130816
  3. DOXYCYCLINE [Concomitant]

REACTIONS (2)
  - Pelvic inflammatory disease [None]
  - Retained products of conception [None]
